FAERS Safety Report 8843426 (Version 2)
Quarter: 2015Q2

REPORT INFORMATION
  Report Type: Report from Study
  Country: US (occurrence: US)
  Receive Date: 20121016
  Receipt Date: 20150626
  Transmission Date: 20150821
  Serious: Yes (Hospitalization, Other)
  Sender: FDA-Public Use
  Company Number: US-ROCHE-1131823

PATIENT
  Sex: Male

DRUGS (3)
  1. NUTROPIN AQ [Suspect]
     Active Substance: SOMATROPIN
     Dosage: 6 INJECTIONS/WEEK
     Route: 058
  2. NUTROPIN AQ [Suspect]
     Active Substance: SOMATROPIN
     Dosage: 6 INJECTIONS/WEEK
     Route: 058
  3. NUTROPIN AQ [Suspect]
     Active Substance: SOMATROPIN
     Indication: GROWTH HORMONE DEFICIENCY
     Dosage: 6 INJECTIONS/WEEK
     Route: 058

REACTIONS (11)
  - Device defective [Unknown]
  - Somnolence [Unknown]
  - Dysarthria [Unknown]
  - Drug dose omission [Unknown]
  - Weight increased [Unknown]
  - Joint swelling [Unknown]
  - Tremor [Unknown]
  - Blood glucose decreased [Unknown]
  - Pyrexia [Unknown]
  - Hyperhidrosis [Unknown]
  - Dizziness [Unknown]
